FAERS Safety Report 13200986 (Version 1)
Quarter: 2017Q1

REPORT INFORMATION
  Report Type: Spontaneous
  Country: GB (occurrence: GB)
  Receive Date: 20170209
  Receipt Date: 20170209
  Transmission Date: 20170428
  Serious: Yes (Life-Threatening, Hospitalization)
  Sender: FDA-Public Use
  Company Number: GB-ROCHE-1890953

PATIENT
  Age: 82 Year
  Sex: Female

DRUGS (11)
  1. DONEPEZIL. [Concomitant]
     Active Substance: DONEPEZIL
     Route: 065
  2. LINAGLIPTIN [Concomitant]
     Active Substance: LINAGLIPTIN
     Route: 065
  3. OSELTAMIVIR [Suspect]
     Active Substance: OSELTAMIVIR
     Indication: INFLUENZA
     Route: 065
     Dates: start: 20170119, end: 20170126
  4. ADCAL-D3 [Concomitant]
     Active Substance: CALCIUM CARBONATE\CHOLECALCIFEROL
     Route: 065
  5. TEMAZEPAM. [Concomitant]
     Active Substance: TEMAZEPAM
     Route: 065
  6. CITALOPRAM [Concomitant]
     Active Substance: CITALOPRAM HYDROBROMIDE
     Route: 065
  7. ENALAPRIL [Concomitant]
     Active Substance: ENALAPRIL
     Route: 065
  8. FUROSEMIDE. [Concomitant]
     Active Substance: FUROSEMIDE
     Route: 065
  9. CODEINE [Concomitant]
     Active Substance: CODEINE
     Route: 065
  10. BUPRENORPHINE. [Concomitant]
     Active Substance: BUPRENORPHINE
     Route: 065
  11. LAXIDO [Concomitant]
     Active Substance: POLYETHYLENE GLYCOL 3350\POTASSIUM CHLORIDE\SODIUM BICARBONATE\SODIUM CHLORIDE
     Route: 065

REACTIONS (4)
  - Melaena [Unknown]
  - Lethargy [Unknown]
  - Upper gastrointestinal haemorrhage [Not Recovered/Not Resolved]
  - Nausea [Unknown]

NARRATIVE: CASE EVENT DATE: 20170125
